FAERS Safety Report 4917089-3 (Version None)
Quarter: 2006Q1

REPORT INFORMATION
  Report Type: 
  Country: None (occurrence: None)
  Receive Date: 20060216
  Receipt Date: 20060216
  Transmission Date: 20060701
  Serious: Yes (Other)
  Sender: FDA-Public Use
  Company Number: None

PATIENT
  Age: 78 Year
  Sex: Male
  Weight: 68.9 kg

DRUGS (8)
  1. CITALOPRAM [Suspect]
  2. ALBUTEROL [Concomitant]
  3. IPRATROPIUM BROMIDE [Concomitant]
  4. ISOSORBIDE DINITRATE [Concomitant]
  5. NITROGLYCERIN [Concomitant]
  6. THEOPHYLLINE (INWOOD) [Concomitant]
  7. CITALOPRAM HYDROBROMIDE [Concomitant]
  8. ABSORBASE [Concomitant]

REACTIONS (1)
  - SOMNOLENCE [None]
